FAERS Safety Report 4548579-3 (Version None)
Quarter: 2004Q4

REPORT INFORMATION
  Report Type: 
  Country: None (occurrence: None)
  Receive Date: 20041227
  Receipt Date: 20040914
  Transmission Date: 20050328
  Serious: No
  Sender: FDA-Public Use
  Company Number: 04P-163-0273652-00

PATIENT
  Age: 49 Year
  Sex: Female
  Weight: 113 kg

DRUGS (9)
  1. HUMIRA [Suspect]
     Indication: RHEUMATOID ARTHRITIS
     Dosage: 40 MG, 1 IN 2 WK, SUBCUTANEOUS
     Route: 058
     Dates: start: 20030101, end: 20030101
  2. HUMIRA [Suspect]
     Indication: RHEUMATOID ARTHRITIS
     Dosage: 40 MG, 1 IN 2 WK, SUBCUTANEOUS
     Route: 058
     Dates: start: 20030101, end: 20040601
  3. HUMIRA [Suspect]
     Indication: RHEUMATOID ARTHRITIS
     Dosage: 40 MG, 1 IN 2 WK, SUBCUTANEOUS
     Route: 058
     Dates: start: 20040601, end: 20040701
  4. HYDROXYCHLOROQUINE SULFATE [Concomitant]
  5. METHOTREXATE [Concomitant]
  6. BUSPIRONE HCL [Concomitant]
  7. ATENOLOL [Concomitant]
  8. LANSOPRAZOLE [Concomitant]
  9. DYAZIDE [Concomitant]

REACTIONS (4)
  - CONDITION AGGRAVATED [None]
  - HELICOBACTER INFECTION [None]
  - MOUTH CYST [None]
  - TOOTH INFECTION [None]
